FAERS Safety Report 26108043 (Version 3)
Quarter: 2025Q4

REPORT INFORMATION
  Report Type: Report from Study
  Country: EU (occurrence: EU)
  Receive Date: 20251201
  Receipt Date: 20251209
  Transmission Date: 20260118
  Serious: Yes (Hospitalization)
  Sender: MYLAN
  Company Number: EU-ABBVIE-6412910

PATIENT
  Age: 66 Year
  Sex: Male

DRUGS (68)
  1. RIVASTIGMINE [Suspect]
     Active Substance: RIVASTIGMINE
     Indication: Parkinson^s disease
     Dosage: 1 DOSAGE FORM, QD (ONE PATCH A DAY)
     Dates: start: 202509, end: 20251102
  2. RIVASTIGMINE [Suspect]
     Active Substance: RIVASTIGMINE
     Dosage: 1 DOSAGE FORM, QD (ONE PATCH A DAY)
     Route: 062
     Dates: start: 202509, end: 20251102
  3. RIVASTIGMINE [Suspect]
     Active Substance: RIVASTIGMINE
     Dosage: 1 DOSAGE FORM, QD (ONE PATCH A DAY)
     Route: 062
     Dates: start: 202509, end: 20251102
  4. RIVASTIGMINE [Suspect]
     Active Substance: RIVASTIGMINE
     Dosage: 1 DOSAGE FORM, QD (ONE PATCH A DAY)
     Dates: start: 202509, end: 20251102
  5. CARBIDOPA\LEVODOPA [Suspect]
     Active Substance: CARBIDOPA\LEVODOPA
     Indication: Dementia with Lewy bodies
     Dosage: 20 MG + 5 MG, MOR:8CC;MAINT:2.8CC/H;EXTR:2CC
  6. CARBIDOPA\LEVODOPA [Suspect]
     Active Substance: CARBIDOPA\LEVODOPA
     Dosage: 20 MG + 5 MG, MOR:8CC;MAINT:2.8CC/H;EXTR:2CC
  7. CARBIDOPA\LEVODOPA [Suspect]
     Active Substance: CARBIDOPA\LEVODOPA
     Dosage: 20 MG + 5 MG, MOR:8CC;MAINT:2.8CC/H;EXTR:2CC
     Route: 065
  8. CARBIDOPA\LEVODOPA [Suspect]
     Active Substance: CARBIDOPA\LEVODOPA
     Dosage: 20 MG + 5 MG, MOR:8CC;MAINT:2.8CC/H;EXTR:2CC
     Route: 065
  9. CARBIDOPA\LEVODOPA [Suspect]
     Active Substance: CARBIDOPA\LEVODOPA
     Dosage: 20 MG + 5 MG, MOR:16CC;MAINT:5;EXTR:3.5CC
     Route: 065
  10. CARBIDOPA\LEVODOPA [Suspect]
     Active Substance: CARBIDOPA\LEVODOPA
     Dosage: 20 MG + 5 MG, MOR:16CC;MAINT:5;EXTR:3.5CC
     Route: 065
  11. CARBIDOPA\LEVODOPA [Suspect]
     Active Substance: CARBIDOPA\LEVODOPA
     Dosage: 20 MG + 5 MG, MOR:16CC;MAINT:5;EXTR:3.5CC
  12. CARBIDOPA\LEVODOPA [Suspect]
     Active Substance: CARBIDOPA\LEVODOPA
     Dosage: 20 MG + 5 MG, MOR:16CC;MAINT:5;EXTR:3.5CC
  13. CARBIDOPA\LEVODOPA [Suspect]
     Active Substance: CARBIDOPA\LEVODOPA
     Dosage: 20 MG + 5 MG (GASTRIC), LAST ADMIN DATE: 2025, MOR:16CC;MAINT:5;EXTR:3.5CC
     Route: 065
     Dates: start: 20250731, end: 20250820
  14. CARBIDOPA\LEVODOPA [Suspect]
     Active Substance: CARBIDOPA\LEVODOPA
     Dosage: 20 MG + 5 MG (GASTRIC), LAST ADMIN DATE: 2025, MOR:16CC;MAINT:5;EXTR:3.5CC
     Dates: start: 20250731, end: 20250820
  15. CARBIDOPA\LEVODOPA [Suspect]
     Active Substance: CARBIDOPA\LEVODOPA
     Dosage: 20 MG + 5 MG (GASTRIC), LAST ADMIN DATE: 2025, MOR:16CC;MAINT:5;EXTR:3.5CC
     Dates: start: 20250731, end: 20250820
  16. CARBIDOPA\LEVODOPA [Suspect]
     Active Substance: CARBIDOPA\LEVODOPA
     Dosage: 20 MG + 5 MG (GASTRIC), LAST ADMIN DATE: 2025, MOR:16CC;MAINT:5;EXTR:3.5CC
     Route: 065
     Dates: start: 20250731, end: 20250820
  17. CARBIDOPA\LEVODOPA [Suspect]
     Active Substance: CARBIDOPA\LEVODOPA
     Dosage: 20 MG + 5 MG (GASTRIC), FIRST ADMIN DATE: 2025, MOR:10CC;MAINT:5;EXTR:4.5CC
  18. CARBIDOPA\LEVODOPA [Suspect]
     Active Substance: CARBIDOPA\LEVODOPA
     Dosage: 20 MG + 5 MG (GASTRIC), FIRST ADMIN DATE: 2025, MOR:10CC;MAINT:5;EXTR:4.5CC
  19. CARBIDOPA\LEVODOPA [Suspect]
     Active Substance: CARBIDOPA\LEVODOPA
     Dosage: 20 MG + 5 MG (GASTRIC), FIRST ADMIN DATE: 2025, MOR:10CC;MAINT:5;EXTR:4.5CC
     Route: 065
  20. CARBIDOPA\LEVODOPA [Suspect]
     Active Substance: CARBIDOPA\LEVODOPA
     Dosage: 20 MG + 5 MG (GASTRIC), FIRST ADMIN DATE: 2025, MOR:10CC;MAINT:5;EXTR:4.5CC
     Route: 065
  21. CARBIDOPA\LEVODOPA [Suspect]
     Active Substance: CARBIDOPA\LEVODOPA
     Dosage: MORNING 10 ML; CONTINUOUS 3.8 ML/H; EXTRA 5 ML. GASTRIC PERFUSION
  22. CARBIDOPA\LEVODOPA [Suspect]
     Active Substance: CARBIDOPA\LEVODOPA
     Dosage: MORNING 10 ML; CONTINUOUS 3.8 ML/H; EXTRA 5 ML. GASTRIC PERFUSION
     Route: 065
  23. CARBIDOPA\LEVODOPA [Suspect]
     Active Substance: CARBIDOPA\LEVODOPA
     Dosage: MORNING 10 ML; CONTINUOUS 3.8 ML/H; EXTRA 5 ML. GASTRIC PERFUSION
  24. CARBIDOPA\LEVODOPA [Suspect]
     Active Substance: CARBIDOPA\LEVODOPA
     Dosage: MORNING 10 ML; CONTINUOUS 3.8 ML/H; EXTRA 5 ML. GASTRIC PERFUSION
     Route: 065
  25. MINIRIN [Concomitant]
     Active Substance: DESMOPRESSIN ACETATE
     Indication: Hypertonic bladder
     Dosage: 1 DOSAGE FORM, QD (1 TABLET AT BEDTIME, BEFORE DUODOPA)
  26. MINIRIN [Concomitant]
     Active Substance: DESMOPRESSIN ACETATE
     Dosage: 1 DOSAGE FORM, QD (1 TABLET AT BEDTIME, BEFORE DUODOPA)
     Route: 048
  27. MINIRIN [Concomitant]
     Active Substance: DESMOPRESSIN ACETATE
     Dosage: 1 DOSAGE FORM, QD (1 TABLET AT BEDTIME, BEFORE DUODOPA)
     Route: 048
  28. MINIRIN [Concomitant]
     Active Substance: DESMOPRESSIN ACETATE
     Dosage: 1 DOSAGE FORM, QD (1 TABLET AT BEDTIME, BEFORE DUODOPA)
  29. MIDODRINE HYDROCHLORIDE [Concomitant]
     Active Substance: MIDODRINE HYDROCHLORIDE
     Indication: Orthostatic hypotension
     Dosage: 2 DOSAGE FORM, BID (4 TABLET, BEFORE DUODOPA)
  30. MIDODRINE HYDROCHLORIDE [Concomitant]
     Active Substance: MIDODRINE HYDROCHLORIDE
     Dosage: 2 DOSAGE FORM, BID (4 TABLET, BEFORE DUODOPA)
     Route: 048
  31. MIDODRINE HYDROCHLORIDE [Concomitant]
     Active Substance: MIDODRINE HYDROCHLORIDE
     Dosage: 2 DOSAGE FORM, BID (4 TABLET, BEFORE DUODOPA)
     Route: 048
  32. MIDODRINE HYDROCHLORIDE [Concomitant]
     Active Substance: MIDODRINE HYDROCHLORIDE
     Dosage: 2 DOSAGE FORM, BID (4 TABLET, BEFORE DUODOPA)
  33. BENSERAZIDE HYDROCHLORIDE\LEVODOPA [Concomitant]
     Active Substance: BENSERAZIDE HYDROCHLORIDE\LEVODOPA
     Indication: Product used for unknown indication
     Dosage: 1 DOSAGE FORM, QD (1 TABLET,AT BEDTIME)
     Dates: start: 202508
  34. BENSERAZIDE HYDROCHLORIDE\LEVODOPA [Concomitant]
     Active Substance: BENSERAZIDE HYDROCHLORIDE\LEVODOPA
     Dosage: 1 DOSAGE FORM, QD (1 TABLET,AT BEDTIME)
     Route: 065
     Dates: start: 202508
  35. BENSERAZIDE HYDROCHLORIDE\LEVODOPA [Concomitant]
     Active Substance: BENSERAZIDE HYDROCHLORIDE\LEVODOPA
     Dosage: 1 DOSAGE FORM, QD (1 TABLET,AT BEDTIME)
     Route: 065
     Dates: start: 202508
  36. BENSERAZIDE HYDROCHLORIDE\LEVODOPA [Concomitant]
     Active Substance: BENSERAZIDE HYDROCHLORIDE\LEVODOPA
     Dosage: 1 DOSAGE FORM, QD (1 TABLET,AT BEDTIME)
     Dates: start: 202508
  37. BETAHISTINE [Concomitant]
     Active Substance: BETAHISTINE
     Indication: Product used for unknown indication
     Dosage: START DATE TEXT: BEFORE DUODOPA
  38. BETAHISTINE [Concomitant]
     Active Substance: BETAHISTINE
     Dosage: START DATE TEXT: BEFORE DUODOPA
     Route: 048
  39. BETAHISTINE [Concomitant]
     Active Substance: BETAHISTINE
     Dosage: START DATE TEXT: BEFORE DUODOPA
     Route: 048
  40. BETAHISTINE [Concomitant]
     Active Substance: BETAHISTINE
     Dosage: START DATE TEXT: BEFORE DUODOPA
  41. BENSERAZIDE HYDROCHLORIDE\LEVODOPA [Concomitant]
     Active Substance: BENSERAZIDE HYDROCHLORIDE\LEVODOPA
     Indication: Product used for unknown indication
     Dosage: 1 DOSAGE FORM, QD (1 TABLET,AT BEDTIME)
     Dates: start: 202508
  42. BENSERAZIDE HYDROCHLORIDE\LEVODOPA [Concomitant]
     Active Substance: BENSERAZIDE HYDROCHLORIDE\LEVODOPA
     Dosage: 1 DOSAGE FORM, QD (1 TABLET,AT BEDTIME)
     Route: 065
     Dates: start: 202508
  43. BENSERAZIDE HYDROCHLORIDE\LEVODOPA [Concomitant]
     Active Substance: BENSERAZIDE HYDROCHLORIDE\LEVODOPA
     Dosage: 1 DOSAGE FORM, QD (1 TABLET,AT BEDTIME)
     Route: 065
     Dates: start: 202508
  44. BENSERAZIDE HYDROCHLORIDE\LEVODOPA [Concomitant]
     Active Substance: BENSERAZIDE HYDROCHLORIDE\LEVODOPA
     Dosage: 1 DOSAGE FORM, QD (1 TABLET,AT BEDTIME)
     Dates: start: 202508
  45. MELAMIL [Concomitant]
     Indication: Product used for unknown indication
     Dosage: 1 DOSAGE FORM, QD (1 TABLET START DATE TEXT: AT BEDTIME, BEFORE DUODOPA)
  46. MELAMIL [Concomitant]
     Dosage: 1 DOSAGE FORM, QD (1 TABLET START DATE TEXT: AT BEDTIME, BEFORE DUODOPA)
     Route: 048
  47. MELAMIL [Concomitant]
     Dosage: 1 DOSAGE FORM, QD (1 TABLET START DATE TEXT: AT BEDTIME, BEFORE DUODOPA)
     Route: 048
  48. MELAMIL [Concomitant]
     Dosage: 1 DOSAGE FORM, QD (1 TABLET START DATE TEXT: AT BEDTIME, BEFORE DUODOPA)
  49. PANTOPRAZOLE [Concomitant]
     Active Substance: PANTOPRAZOLE
     Indication: Product used for unknown indication
     Dosage: 1 DOSAGE FORM (1 TABLET START DATE TEXT: BEFORE DUODOPA)
  50. PANTOPRAZOLE [Concomitant]
     Active Substance: PANTOPRAZOLE
     Dosage: 1 DOSAGE FORM (1 TABLET START DATE TEXT: BEFORE DUODOPA)
     Route: 048
  51. PANTOPRAZOLE [Concomitant]
     Active Substance: PANTOPRAZOLE
     Dosage: 1 DOSAGE FORM (1 TABLET START DATE TEXT: BEFORE DUODOPA)
     Route: 048
  52. PANTOPRAZOLE [Concomitant]
     Active Substance: PANTOPRAZOLE
     Dosage: 1 DOSAGE FORM (1 TABLET START DATE TEXT: BEFORE DUODOPA)
  53. QUETIAPINE [Concomitant]
     Active Substance: QUETIAPINE
     Indication: Product used for unknown indication
     Dosage: START DATE TEXT: BEFORE DUODOPA
  54. QUETIAPINE [Concomitant]
     Active Substance: QUETIAPINE
     Dosage: START DATE TEXT: BEFORE DUODOPA
     Route: 048
  55. QUETIAPINE [Concomitant]
     Active Substance: QUETIAPINE
     Dosage: START DATE TEXT: BEFORE DUODOPA
     Route: 048
  56. QUETIAPINE [Concomitant]
     Active Substance: QUETIAPINE
     Dosage: START DATE TEXT: BEFORE DUODOPA
  57. RIVOTRIL [Concomitant]
     Active Substance: CLONAZEPAM
     Indication: Product used for unknown indication
     Dosage: BEFORE DUODOPA
  58. RIVOTRIL [Concomitant]
     Active Substance: CLONAZEPAM
     Dosage: BEFORE DUODOPA
     Route: 048
  59. RIVOTRIL [Concomitant]
     Active Substance: CLONAZEPAM
     Dosage: BEFORE DUODOPA
     Route: 048
  60. RIVOTRIL [Concomitant]
     Active Substance: CLONAZEPAM
     Dosage: BEFORE DUODOPA
  61. CLOZAPINE [Concomitant]
     Active Substance: CLOZAPINE
     Indication: Product used for unknown indication
     Dosage: UNK
  62. CLOZAPINE [Concomitant]
     Active Substance: CLOZAPINE
     Dosage: UNK
  63. CLOZAPINE [Concomitant]
     Active Substance: CLOZAPINE
     Dosage: UNK
     Route: 048
  64. CLOZAPINE [Concomitant]
     Active Substance: CLOZAPINE
     Dosage: UNK
     Route: 048
  65. CLOZAPINE [Concomitant]
     Active Substance: CLOZAPINE
     Dosage: ONE TABLET AT 7AM, HALF A TABLET AT 12PM, 4PM, AND 8PM
  66. CLOZAPINE [Concomitant]
     Active Substance: CLOZAPINE
     Dosage: ONE TABLET AT 7AM, HALF A TABLET AT 12PM, 4PM, AND 8PM
  67. CLOZAPINE [Concomitant]
     Active Substance: CLOZAPINE
     Dosage: ONE TABLET AT 7AM, HALF A TABLET AT 12PM, 4PM, AND 8PM
     Route: 048
  68. CLOZAPINE [Concomitant]
     Active Substance: CLOZAPINE
     Dosage: ONE TABLET AT 7AM, HALF A TABLET AT 12PM, 4PM, AND 8PM
     Route: 048

REACTIONS (4)
  - Mobility decreased [Recovered/Resolved]
  - Psychotic disorder [Recovered/Resolved]
  - Aggression [Recovered/Resolved]
  - Skin reaction [Recovered/Resolved]

NARRATIVE: CASE EVENT DATE: 20250801
